FAERS Safety Report 9651917 (Version 1)
Quarter: 2013Q4

REPORT INFORMATION
  Report Type: Spontaneous
  Country: US (occurrence: None)
  Receive Date: 20131028
  Receipt Date: 20131028
  Transmission Date: 20140711
  Serious: Yes (Other)
  Sender: FDA-Public Use
  Company Number: None

PATIENT
  Age: 73 Year
  Sex: Female
  Weight: 100.7 kg

DRUGS (3)
  1. DEXTROAMPHETAMINE SR [Suspect]
     Indication: ATTENTION DEFICIT/HYPERACTIVITY DISORDER
     Dosage: UP TO 60 MG/DAY, TID, ORAL
  2. LISINOPRIL [Concomitant]
  3. PERCOCET [Concomitant]

REACTIONS (3)
  - Dyspnoea [None]
  - Pulmonary hypertension [None]
  - Drug abuse [None]
